FAERS Safety Report 23112105 (Version 1)
Quarter: 2023Q4

REPORT INFORMATION
  Report Type: Other
  Country: US (occurrence: None)
  Receive Date: 20231026
  Receipt Date: 20231026
  Transmission Date: 20240110
  Serious: Yes (Other)
  Sender: FDA-Public Use
  Company Number: US-ROCHE-3409732

PATIENT
  Age: 59 Year
  Sex: Female

DRUGS (9)
  1. ACTEMRA [Suspect]
     Active Substance: TOCILIZUMAB
     Indication: Rheumatoid arthritis
     Route: 042
  2. PROVENTIL HFA [Concomitant]
     Active Substance: ALBUTEROL SULFATE
  3. BIOTIN [Concomitant]
     Active Substance: BIOTIN
  4. LOTRISONE [Concomitant]
     Active Substance: BETAMETHASONE DIPROPIONATE\CLOTRIMAZOLE
  5. CYMBALTA [Concomitant]
     Active Substance: DULOXETINE HYDROCHLORIDE
  6. PEPCID [Concomitant]
     Active Substance: FAMOTIDINE
  7. FOLVITE [Concomitant]
     Active Substance: FOLIC ACID
  8. NEURONTIN [Concomitant]
     Active Substance: GABAPENTIN
  9. KLONOPIN [Concomitant]
     Active Substance: CLONAZEPAM

REACTIONS (2)
  - Off label use [Unknown]
  - Neoplasm malignant [Unknown]
